FAERS Safety Report 23354092 (Version 3)
Quarter: 2024Q2

REPORT INFORMATION
  Report Type: Other
  Country: JP (occurrence: JP)
  Receive Date: 20240101
  Receipt Date: 20240424
  Transmission Date: 20240716
  Serious: Yes (Hospitalization)
  Sender: FDA-Public Use
  Company Number: JP-CHUGAI-2021025825

PATIENT
  Age: 58 Year
  Sex: Female
  Weight: 49 kg

DRUGS (8)
  1. ENSPRYNG [Suspect]
     Active Substance: SATRALIZUMAB-MWGE
     Indication: Neuromyelitis optica spectrum disorder
     Route: 058
     Dates: start: 20210311, end: 20210325
  2. ENSPRYNG [Suspect]
     Active Substance: SATRALIZUMAB-MWGE
     Route: 058
     Dates: start: 20210413
  3. TACROLIMUS [Concomitant]
     Active Substance: TACROLIMUS
     Indication: Neuromyelitis optica spectrum disorder
     Dates: start: 20210311
  4. TACROLIMUS [Concomitant]
     Active Substance: TACROLIMUS
     Route: 065
  5. PREDNISOLONE [Concomitant]
     Active Substance: PREDNISOLONE
     Indication: Neuromyelitis optica spectrum disorder
     Route: 048
     Dates: start: 20210311, end: 20210826
  6. PREDNISOLONE [Concomitant]
     Active Substance: PREDNISOLONE
     Dosage: 8MG/DAY
     Route: 065
  7. PREDNISOLONE [Concomitant]
     Active Substance: PREDNISOLONE
     Dosage: 7MG/DAY
     Route: 065
  8. PREDNISOLONE [Concomitant]
     Active Substance: PREDNISOLONE
     Dosage: 5MG/DAY
     Route: 065

REACTIONS (4)
  - Aortic dissection [Unknown]
  - Disease progression [Not Recovered/Not Resolved]
  - Oesophageal candidiasis [Recovered/Resolved]
  - Inappropriate schedule of product administration [Unknown]

NARRATIVE: CASE EVENT DATE: 20210413
